FAERS Safety Report 7979062-0 (Version None)
Quarter: 2011Q4

REPORT INFORMATION
  Report Type: 
  Country: None (occurrence: None)
  Receive Date: 20111214
  Receipt Date: 20111208
  Transmission Date: 20120403
  Serious: Yes (Other)
  Sender: FDA-Public Use
  Company Number: US-PFIZER INC-2011300876

PATIENT

DRUGS (3)
  1. ACETYLSALICYLIC ACID SRT [Suspect]
     Dosage: UNK
  2. IBUPROFEN (ADVIL) [Suspect]
     Dosage: UNK
  3. NAPROXEN (ALEVE) [Suspect]
     Dosage: UNK

REACTIONS (1)
  - HAEMORRHAGE [None]
